FAERS Safety Report 22296498 (Version 1)
Quarter: 2023Q2

REPORT INFORMATION
  Report Type: Spontaneous
  Country: US (occurrence: None)
  Receive Date: 20230508
  Receipt Date: 20230508
  Transmission Date: 20230722
  Serious: No
  Sender: FDA-Public Use
  Company Number: None

PATIENT
  Sex: Female

DRUGS (2)
  1. BACLOFEN [Suspect]
     Active Substance: BACLOFEN
  2. BACLOFEN [Suspect]
     Active Substance: BACLOFEN

REACTIONS (6)
  - Overdose [None]
  - Sedation [None]
  - Somnolence [None]
  - Depressed level of consciousness [None]
  - Hypoxia [None]
  - Product communication issue [None]
